FAERS Safety Report 8517508-X (Version None)
Quarter: 2012Q3

REPORT INFORMATION
  Report Type: 
  Country: None (occurrence: None)
  Receive Date: 20120718
  Receipt Date: 20120710
  Transmission Date: 20120928
  Serious: Yes (Other)
  Sender: FDA-Public Use
  Company Number: US-ASTRAZENECA-2012SE26387

PATIENT
  Sex: Male

DRUGS (7)
  1. PLAVIX [Concomitant]
     Indication: CARDIAC DISORDER
  2. LEVOTHYROXINE SODIUM [Concomitant]
     Indication: THYROID DISORDER
  3. SIMVASTATIN [Concomitant]
     Indication: BLOOD CHOLESTEROL ABNORMAL
  4. NEXIUM [Suspect]
     Indication: BARRETT'S OESOPHAGUS
     Route: 048
  5. NEXIUM [Suspect]
     Route: 048
  6. AMLODIPINE [Concomitant]
     Indication: BLOOD PRESSURE
  7. LISINOPRIL [Suspect]
     Route: 048

REACTIONS (8)
  - GASTROOESOPHAGEAL REFLUX DISEASE [None]
  - DRUG DISPENSING ERROR [None]
  - CARDIAC DISORDER [None]
  - DYSPEPSIA [None]
  - ADVERSE EVENT [None]
  - MYOCARDIAL INFARCTION [None]
  - DRUG DOSE OMISSION [None]
  - OFF LABEL USE [None]
